FAERS Safety Report 8477149-X (Version None)
Quarter: 2012Q2

REPORT INFORMATION
  Report Type: 
  Country: None (occurrence: None)
  Receive Date: 20120625
  Receipt Date: 20120625
  Transmission Date: 20120825
  Serious: Yes (Hospitalization)
  Sender: FDA-Public Use
  Company Number: None

PATIENT
  Age: 68 Year
  Sex: Male
  Weight: 96.6 kg

DRUGS (1)
  1. QUETIAPINE [Suspect]
     Indication: POST-TRAUMATIC STRESS DISORDER
     Dosage: 50 MG HS PO
     Route: 048
     Dates: start: 20060420, end: 20120614

REACTIONS (1)
  - BRADYCARDIA [None]
